FAERS Safety Report 5862666-9 (Version None)
Quarter: 2008Q3

REPORT INFORMATION
  Report Type: 
  Country: None (occurrence: None)
  Receive Date: 20080827
  Receipt Date: 20080827
  Transmission Date: 20090109
  Serious: Yes (Death, Life-Threatening, Hospitalization)
  Sender: FDA-Public Use
  Company Number: None

PATIENT
  Age: 86 Year
  Sex: Female
  Weight: 43.5453 kg

DRUGS (2)
  1. RISPERDAL [Suspect]
     Indication: PSYCHOTIC DISORDER
     Dosage: 0.5 MG 1 X / DAY BEDTIME BUCCAL
     Route: 002
     Dates: start: 20080601
  2. ZYPREXA [Suspect]
     Indication: PSYCHOTIC DISORDER
     Dosage: 5 MG 1 X / DAY BEDTIME BUCCAL
     Route: 002
     Dates: start: 20080701

REACTIONS (2)
  - ADVERSE EVENT [None]
  - INCREASED UPPER AIRWAY SECRETION [None]
